FAERS Safety Report 7184196-7 (Version None)
Quarter: 2010Q4

REPORT INFORMATION
  Report Type: 
  Country: None (occurrence: None)
  Receive Date: 20101222
  Receipt Date: 20100519
  Transmission Date: 20110411
  Serious: No
  Sender: FDA-Public Use
  Company Number: US-AMGEN-KDL413339

PATIENT

DRUGS (13)
  1. ENBREL [Suspect]
     Indication: PRODUCT USED FOR UNKNOWN INDICATION
     Dosage: 50 MG, QWK
     Route: 058
  2. FUROSEMIDE [Concomitant]
     Dosage: 40 MG, UNK
  3. METHOTREXATE [Concomitant]
     Dosage: 2.5 MG, UNK
  4. PREDNISONE [Concomitant]
     Dosage: 1 MG, UNK
  5. NIASPAN [Concomitant]
     Dosage: 500 MG, UNK
  6. VALSARTAN [Concomitant]
     Dosage: 80 MG, UNK
  7. ATENOLOL [Concomitant]
     Dosage: 25 MG, UNK
  8. LOVASTATIN [Concomitant]
     Dosage: 40 MG, UNK
  9. FOLIC ACID [Concomitant]
     Dosage: 1 MG, UNK
  10. POTASSIUM CHLORIDE [Concomitant]
     Dosage: UNK UNK, UNK
  11. CALCIUM CARBONATE [Concomitant]
     Dosage: UNK UNK, UNK
  12. ASPIRIN [Concomitant]
     Dosage: 325 MG, UNK
  13. ACETAMINOPHEN [Concomitant]
     Dosage: 500 MG, UNK

REACTIONS (2)
  - NASAL DRYNESS [None]
  - SKIN EXFOLIATION [None]
